FAERS Safety Report 11390458 (Version 1)
Quarter: 2015Q3

REPORT INFORMATION
  Report Type: Spontaneous
  Country: US (occurrence: US)
  Receive Date: 20150818
  Receipt Date: 20150818
  Transmission Date: 20151125
  Serious: No
  Sender: FDA-Public Use
  Company Number: US-ROCHE-1349053

PATIENT
  Sex: Female
  Weight: 59.93 kg

DRUGS (3)
  1. RIBASPHERE RIBAPAK [Suspect]
     Active Substance: RIBAVIRIN
     Indication: CHRONIC HEPATITIS C
     Route: 048
     Dates: start: 20140128
  2. PEGASYS [Suspect]
     Active Substance: PEGINTERFERON ALFA-2A
     Indication: CHRONIC HEPATITIS C
     Route: 058
     Dates: start: 20140128, end: 20140422
  3. SOVALDI [Suspect]
     Active Substance: SOFOSBUVIR
     Indication: CHRONIC HEPATITIS C
     Route: 065
     Dates: start: 20140128

REACTIONS (21)
  - Back pain [Unknown]
  - Confusional state [Unknown]
  - Fatigue [Unknown]
  - Nausea [Unknown]
  - Weight decreased [Unknown]
  - Panic reaction [Unknown]
  - Epistaxis [Unknown]
  - Dry mouth [Unknown]
  - Photosensitivity reaction [Unknown]
  - Skin haemorrhage [Unknown]
  - Paranoia [Unknown]
  - Fungal infection [Unknown]
  - Emotional distress [Unknown]
  - Platelet count decreased [Unknown]
  - Dry throat [Recovered/Resolved]
  - Affect lability [Unknown]
  - Anxiety [Unknown]
  - Migraine [Unknown]
  - Memory impairment [Unknown]
  - Temperature intolerance [Unknown]
  - Disturbance in attention [Unknown]
